FAERS Safety Report 6871885-4 (Version None)
Quarter: 2010Q3

REPORT INFORMATION
  Report Type: 
  Country: None (occurrence: None)
  Receive Date: 20100723
  Receipt Date: 20100714
  Transmission Date: 20110219
  Serious: Yes (Hospitalization, Disabling)
  Sender: FDA-Public Use
  Company Number: JP-JNJFOC-20100604968

PATIENT
  Sex: Male

DRUGS (17)
  1. LEVOFLOXACIN [Suspect]
     Indication: MALAISE
     Route: 048
  2. LEVOFLOXACIN [Suspect]
     Indication: PYREXIA
     Route: 048
  3. LEVOFLOXACIN [Suspect]
     Indication: PHARYNGITIS
     Route: 048
  4. LEVOFLOXACIN [Suspect]
     Indication: BRONCHITIS
     Route: 048
  5. TRANSAMIN [Concomitant]
     Indication: PHARYNGITIS
     Route: 048
  6. TRANSAMIN [Concomitant]
     Indication: BRONCHITIS
     Route: 048
  7. MEDICON [Concomitant]
     Indication: PHARYNGITIS
     Route: 048
  8. MEDICON [Concomitant]
     Indication: BRONCHITIS
     Route: 048
  9. IBRUPROFEN [Concomitant]
     Indication: PHARYNGITIS
     Route: 048
  10. IBRUPROFEN [Concomitant]
     Indication: BRONCHITIS
     Route: 048
  11. CONIEL [Concomitant]
     Indication: HYPERTENSION
     Route: 048
  12. FLUVASTATIN SODIUM [Concomitant]
     Indication: HYPERCHOLESTEROLAEMIA
     Route: 048
  13. OMEPRAL [Concomitant]
     Indication: GASTRITIS EROSIVE
     Route: 048
  14. ALL OTHER THERAPEUTIC PRODUCTS [Concomitant]
     Indication: PHARYNGITIS
     Route: 048
  15. ALL OTHER THERAPEUTIC PRODUCTS [Concomitant]
     Indication: BRONCHITIS
     Route: 048
  16. ZITHROMAC [Concomitant]
     Indication: PHARYNGITIS
     Route: 048
  17. ZITHROMAC [Concomitant]
     Indication: BRONCHITIS
     Route: 048

REACTIONS (1)
  - INTERSTITIAL LUNG DISEASE [None]
